FAERS Safety Report 6871056-1 (Version None)
Quarter: 2010Q3

REPORT INFORMATION
  Report Type: 
  Country: None (occurrence: None)
  Receive Date: 20100723
  Receipt Date: 20100712
  Transmission Date: 20110219
  Serious: Yes (Death, Hospitalization, Other)
  Sender: FDA-Public Use
  Company Number: US-PFIZER INC-2010031140

PATIENT
  Sex: Female

DRUGS (1)
  1. CHANTIX [Suspect]
     Indication: SMOKING CESSATION THERAPY
     Dosage: 1MG AND 0.5MG, UNK
     Dates: start: 20071018, end: 20080131

REACTIONS (3)
  - BRAIN INJURY [None]
  - CEREBROVASCULAR ACCIDENT [None]
  - FEAR OF DEATH [None]
